FAERS Safety Report 24326256 (Version 1)
Quarter: 2024Q3

REPORT INFORMATION
  Report Type: Spontaneous
  Country: FR (occurrence: FR)
  Receive Date: 20240917
  Receipt Date: 20240917
  Transmission Date: 20241017
  Serious: Yes (Hospitalization)
  Sender: CHEPLAPHARM
  Company Number: None

PATIENT
  Age: 47 Year
  Sex: Male
  Weight: 88 kg

DRUGS (6)
  1. VALGANCICLOVIR [Suspect]
     Active Substance: VALGANCICLOVIR
     Indication: Prophylaxis
     Dosage: DAILY DOSE: 450 MILLIGRAM
     Route: 048
     Dates: start: 20240529, end: 20240714
  2. VALGANCICLOVIR [Suspect]
     Active Substance: VALGANCICLOVIR
     Indication: Prophylaxis
     Dosage: 2 DOSES PER WEEK
     Route: 048
  3. MYFORTIC [Suspect]
     Active Substance: MYCOPHENOLATE SODIUM
     Indication: Glomerulonephritis membranoproliferative
     Dosage: GASTRO-RESISTANT FILM-COATED TABLET?DAILY DOSE: 1 DOSAGE FORM
     Route: 048
     Dates: start: 2024, end: 20240806
  4. BACTRIM [Suspect]
     Active Substance: SULFAMETHOXAZOLE\TRIMETHOPRIM
     Indication: Prophylaxis
     Dosage: DAILY DOSE: 1 DOSAGE FORM
     Route: 048
     Dates: start: 20240529, end: 20240714
  5. ENVARSUS XR [Suspect]
     Active Substance: TACROLIMUS
     Indication: Glomerulonephritis membranoproliferative
     Dosage: DAILY DOSE: 4 MILLIGRAM
     Route: 048
     Dates: start: 2024
  6. DARZALEX [Suspect]
     Active Substance: DARATUMUMAB
     Indication: Glomerulonephritis membranoproliferative
     Dosage: 1800 MG, INJECTABLE SOLUTION?DAILY DOSE: 16 MILLIGRAM/KG
     Route: 058
     Dates: start: 20240527

REACTIONS (6)
  - Urinary tract infection [Recovered/Resolved]
  - Pancytopenia [Not Recovered/Not Resolved]
  - Acute kidney injury [Unknown]
  - Sepsis [Unknown]
  - Escherichia infection [Unknown]
  - Blood glucose abnormal [Unknown]

NARRATIVE: CASE EVENT DATE: 20240715
